FAERS Safety Report 6881092-7 (Version None)
Quarter: 2010Q3

REPORT INFORMATION
  Report Type: 
  Country: None (occurrence: None)
  Receive Date: 20100727
  Receipt Date: 20100719
  Transmission Date: 20110219
  Serious: Yes (Other)
  Sender: FDA-Public Use
  Company Number: US-BIOGENIDEC-2008BI003036

PATIENT
  Age: 51 Year
  Sex: Female
  Weight: 63 kg

DRUGS (2)
  1. AVONEX [Suspect]
     Indication: MULTIPLE SCLEROSIS
     Route: 030
     Dates: start: 19970101, end: 20030101
  2. AVONEX [Suspect]
     Route: 030
     Dates: start: 20080201

REACTIONS (3)
  - BREAST CANCER [None]
  - MULTIPLE SCLEROSIS RELAPSE [None]
  - PYREXIA [None]
